FAERS Safety Report 16124955 (Version 1)
Quarter: 2019Q1

REPORT INFORMATION
  Report Type: Spontaneous
  Country: US (occurrence: US)
  Receive Date: 20190327
  Receipt Date: 20190327
  Transmission Date: 20190418
  Serious: No
  Sender: FDA-Public Use
  Company Number: US-PFIZER INC-2019122114

PATIENT
  Age: 60 Year
  Sex: Male

DRUGS (2)
  1. CLINDAMYCIN HCL [Suspect]
     Active Substance: CLINDAMYCIN HYDROCHLORIDE
     Dosage: UNK
  2. TORADOL [Suspect]
     Active Substance: KETOROLAC TROMETHAMINE
     Dosage: UNK

REACTIONS (2)
  - Rash [Unknown]
  - Drug hypersensitivity [Unknown]
